FAERS Safety Report 18518594 (Version 7)
Quarter: 2021Q1

REPORT INFORMATION
  Report Type: Spontaneous
  Country: US (occurrence: US)
  Receive Date: 20201118
  Receipt Date: 20210210
  Transmission Date: 20210419
  Serious: No
  Sender: FDA-Public Use
  Company Number: US-PFIZER INC-2020455732

PATIENT
  Age: 57 Year
  Sex: Female

DRUGS (2)
  1. IBRANCE [Suspect]
     Active Substance: PALBOCICLIB
     Dosage: 125 MG
     Dates: start: 20201103
  2. IBRANCE [Suspect]
     Active Substance: PALBOCICLIB
     Dosage: 125 MG
     Dates: start: 20201102

REACTIONS (4)
  - Arthralgia [Not Recovered/Not Resolved]
  - Fatigue [Unknown]
  - Stomatitis [Recovered/Resolved]
  - Hepatic enzyme abnormal [Unknown]

NARRATIVE: CASE EVENT DATE: 202011
